FAERS Safety Report 5297428-7 (Version None)
Quarter: 2007Q2

REPORT INFORMATION
  Report Type: 
  Country: None (occurrence: None)
  Receive Date: 20070409
  Receipt Date: 20070330
  Transmission Date: 20071010
  Serious: Yes (Hospitalization)
  Sender: FDA-Public Use
  Company Number: SO7-ITA-00799-01

PATIENT
  Age: 77 Year
  Sex: Male

DRUGS (6)
  1. EBIXA (MEMANTINE) [Suspect]
     Indication: DEMENTIA ALZHEIMER'S TYPE
     Dosage: 20 MG DAILY PO
     Route: 048
     Dates: start: 20050101, end: 20060110
  2. MEMAC (DONEPEZIL HYDROCHLORIDE) [Suspect]
     Indication: DEMENTIA ALZHEIMER'S TYPE
     Dosage: 10 MG DAILY PO
     Route: 048
     Dates: start: 20050501, end: 20060110
  3. MADOPAR [Concomitant]
  4. PERDIPINA (NICARDIPINE HYDROCHLORIDE) [Concomitant]
  5. TOLTERODINE TARTRATE [Concomitant]
  6. ASPIRIN [Concomitant]

REACTIONS (3)
  - COMPUTERISED TOMOGRAM ABNORMAL [None]
  - ELECTROENCEPHALOGRAM ABNORMAL [None]
  - GRAND MAL CONVULSION [None]
